FAERS Safety Report 4964134-5 (Version None)
Quarter: 2006Q1

REPORT INFORMATION
  Report Type: 
  Country: None (occurrence: None)
  Receive Date: 20060330
  Receipt Date: 20060310
  Transmission Date: 20060701
  Serious: Yes (Other)
  Sender: FDA-Public Use
  Company Number: US200602000838

PATIENT
  Age: 56 Year
  Sex: Female
  Weight: 45.4 kg

DRUGS (9)
  1. FORTEO [Suspect]
     Indication: OSTEOPOROSIS
     Dosage: 20 UG, DAILY (1/D)
     Dates: start: 20050917, end: 20060113
  2. FORTEO [Concomitant]
  3. ERGOCALCIFEROL (VITAMIN D) [Concomitant]
  4. CALCIUM GLUCONATE [Concomitant]
  5. NAPROXEN [Concomitant]
  6. ADVAIR DISKUS 100/50 [Concomitant]
  7. MONTELUKAST SODIUM [Concomitant]
  8. THEOPHYLLINE [Concomitant]
  9. ACIPHEX [Concomitant]

REACTIONS (2)
  - BLOOD CALCIUM INCREASED [None]
  - BREAST CANCER [None]
